FAERS Safety Report 19743036 (Version 1)
Quarter: 2021Q3

REPORT INFORMATION
  Report Type: Spontaneous
  Country: US (occurrence: US)
  Receive Date: 20210824
  Receipt Date: 20210824
  Transmission Date: 20211014
  Serious: No
  Sender: FDA-Public Use
  Company Number: US-ARBOR PHARMACEUTICALS, LLC-US-2021ARB000442

PATIENT
  Age: 15 Year
  Sex: Male

DRUGS (5)
  1. TRIPTODUR [Suspect]
     Active Substance: TRIPTORELIN
  2. TYLENOL [Concomitant]
     Active Substance: ACETAMINOPHEN
     Indication: PRODUCT USED FOR UNKNOWN INDICATION
     Dosage: 500 UNK, PRN
     Route: 048
  3. TRIPTODUR [Suspect]
     Active Substance: TRIPTORELIN
  4. TESTOSTERONE. [Concomitant]
     Active Substance: TESTOSTERONE
     Indication: PRODUCT USED FOR UNKNOWN INDICATION
     Dosage: 1.5 UNK, UNK
     Route: 058
  5. TRIPTODUR [Suspect]
     Active Substance: TRIPTORELIN
     Indication: TRANS-SEXUALISM
     Dosage: UNK, SINGLE
     Route: 030
     Dates: start: 20210414, end: 20210414

REACTIONS (2)
  - Needle issue [Recovered/Resolved]
  - Off label use [Unknown]

NARRATIVE: CASE EVENT DATE: 20210414
